FAERS Safety Report 14254418 (Version 4)
Quarter: 2018Q1

REPORT INFORMATION
  Report Type: Spontaneous
  Country: US (occurrence: US)
  Receive Date: 20171205
  Receipt Date: 20180122
  Transmission Date: 20180508
  Serious: Yes (Hospitalization)
  Sender: FDA-Public Use
  Company Number: US-PFIZER INC-2017516517

PATIENT
  Age: 72 Year
  Sex: Female
  Weight: 40.14 kg

DRUGS (2)
  1. REVATIO [Suspect]
     Active Substance: SILDENAFIL CITRATE
     Indication: LUNG DISORDER
  2. REVATIO [Suspect]
     Active Substance: SILDENAFIL CITRATE
     Indication: PULMONARY HYPERTENSION
     Dosage: 20 MG, 3X/DAY
     Route: 048

REACTIONS (6)
  - Renal disorder [Not Recovered/Not Resolved]
  - Weight decreased [Unknown]
  - Lung disorder [Not Recovered/Not Resolved]
  - Cardiac disorder [Not Recovered/Not Resolved]
  - Fluid retention [Not Recovered/Not Resolved]
  - Condition aggravated [Not Recovered/Not Resolved]
